FAERS Safety Report 15485351 (Version 1)
Quarter: 2018Q4

REPORT INFORMATION
  Report Type: Spontaneous
  Country: US (occurrence: US)
  Receive Date: 20181010
  Receipt Date: 20181010
  Transmission Date: 20190205
  Serious: Yes (Other)
  Sender: FDA-Public Use
  Company Number: US-ROCHE-2157515

PATIENT
  Age: 57 Year
  Sex: Female

DRUGS (3)
  1. ALECTINIB. [Suspect]
     Active Substance: ALECTINIB
     Indication: METASTASES TO CENTRAL NERVOUS SYSTEM
  2. BRIGATINIB [Concomitant]
     Active Substance: BRIGATINIB
  3. ALECTINIB. [Suspect]
     Active Substance: ALECTINIB
     Indication: LUNG ADENOCARCINOMA
     Route: 065

REACTIONS (1)
  - Hepatotoxicity [Unknown]
